FAERS Safety Report 24839024 (Version 3)
Quarter: 2025Q3

REPORT INFORMATION
  Report Type: Spontaneous
  Country: US (occurrence: US)
  Receive Date: 20250114
  Receipt Date: 20250728
  Transmission Date: 20251020
  Serious: No
  Sender: ELI LILLY AND COMPANY
  Company Number: US-ELI_LILLY_AND_COMPANY-US202501006964

PATIENT
  Age: 51 Year
  Sex: Male

DRUGS (4)
  1. HUMULIN R [Suspect]
     Active Substance: INSULIN HUMAN
     Indication: Type 1 diabetes mellitus
     Dosage: 100 U, TID (BEFORE MEALS)
     Route: 065
     Dates: start: 20240122
  2. HUMULIN R [Suspect]
     Active Substance: INSULIN HUMAN
     Indication: Diabetic neuropathy
     Dosage: 160 U, DAILY
     Route: 065
  3. HUMULIN R [Suspect]
     Active Substance: INSULIN HUMAN
     Dosage: 110 U, DAILY
     Route: 065
  4. HUMULIN R [Suspect]
     Active Substance: INSULIN HUMAN
     Dosage: 120 U, DAILY
     Route: 065

REACTIONS (8)
  - Intercepted product storage error [Unknown]
  - Intentional dose omission [Unknown]
  - Mobility decreased [Unknown]
  - Peripheral swelling [Unknown]
  - Productive cough [Unknown]
  - Pain in extremity [Unknown]
  - Off label use [Unknown]
  - Blood glucose increased [Unknown]
